FAERS Safety Report 17652106 (Version 1)
Quarter: 2020Q2

REPORT INFORMATION
  Report Type: Spontaneous
  Country: CA (occurrence: CA)
  Receive Date: 20200409
  Receipt Date: 20200409
  Transmission Date: 20200713
  Serious: Yes (Hospitalization, Other)
  Sender: FDA-Public Use
  Company Number: CA-ASTRAZENECA-2020SE48846

PATIENT
  Age: 56 Year
  Sex: Female

DRUGS (21)
  1. FLUTICASONE PROPIONATE. [Suspect]
     Active Substance: FLUTICASONE PROPIONATE
     Route: 065
  2. PAROXETINE HYDROCHLORIDE. [Concomitant]
     Active Substance: PAROXETINE HYDROCHLORIDE
  3. VITAMIN D NOS [Concomitant]
     Active Substance: VITAMIN D NOS
  4. PREMARIN [Concomitant]
     Active Substance: ESTROGENS, CONJUGATED
  5. CETIRIZINE HYDROCHLORIDE. [Concomitant]
     Active Substance: CETIRIZINE HYDROCHLORIDE
  6. VALSARTAN. [Concomitant]
     Active Substance: VALSARTAN
  7. PANTOPRAZOLE SODIUM ANHYDROUS [Concomitant]
     Active Substance: PANTOPRAZOLE SODIUM ANHYDROUS
  8. AVAMYS [Suspect]
     Active Substance: FLUTICASONE FUROATE
     Route: 065
  9. MONTELUKAST SODIUM. [Suspect]
     Active Substance: MONTELUKAST SODIUM
     Route: 065
  10. SALBUTAMOL SULFATE [Suspect]
     Active Substance: ALBUTEROL SULFATE
     Route: 065
  11. THEOPHYLLINE [Suspect]
     Active Substance: THEOPHYLLINE ANHYDROUS
     Route: 065
  12. FLUTICASONE PROPIONATE; SALMETEROL XINAFOATE [Suspect]
     Active Substance: FLUTICASONE PROPIONATE\SALMETEROL XINAFOATE
     Route: 065
  13. GLYCOPYRRONIUM BROMIDE [Suspect]
     Active Substance: GLYCOPYRRONIUM
     Route: 065
  14. PREDNISONE. [Suspect]
     Active Substance: PREDNISONE
     Route: 065
  15. BUPROPION HYDROBROMIDE [Concomitant]
     Active Substance: BUPROPION HYDROBROMIDE
  16. HYDROCHLOROTHIAZIDE; VALSARTAN [Concomitant]
  17. BUDESONIDE; FORMOTEROL [Suspect]
     Active Substance: BUDESONIDE\FORMOTEROL
     Route: 055
  18. ATROVENT [Suspect]
     Active Substance: IPRATROPIUM BROMIDE
     Route: 065
  19. DULOXETINE HYDROCHLORIDE. [Concomitant]
     Active Substance: DULOXETINE HYDROCHLORIDE
  20. ESOMEPRAZOLE MAGNESIUM TRIHYDRATE [Concomitant]
     Active Substance: ESOMEPRAZOLE MAGNESIUM
  21. ALVESCO [Suspect]
     Active Substance: CICLESONIDE
     Route: 055

REACTIONS (28)
  - Breath sounds abnormal [Unknown]
  - Condition aggravated [Unknown]
  - Granuloma [Unknown]
  - Hypersensitivity [Unknown]
  - Nasal congestion [Unknown]
  - Respiratory disorder [Unknown]
  - Sinus tachycardia [Unknown]
  - Therapeutic product effect incomplete [Unknown]
  - Bronchial disorder [Unknown]
  - Bronchial neoplasm [Unknown]
  - Herpes zoster [Unknown]
  - Asthma [Unknown]
  - Affective disorder [Unknown]
  - Ankle fracture [Unknown]
  - Endometrial ablation [Unknown]
  - Obstructive airways disorder [Unknown]
  - Weight increased [Unknown]
  - Dyspnoea [Unknown]
  - Oxygen saturation decreased [Unknown]
  - Rhinitis [Unknown]
  - Nasal turbinate hypertrophy [Unknown]
  - Rhonchi [Unknown]
  - Sinusitis [Unknown]
  - Maternal exposure during pregnancy [Unknown]
  - Bronchial haemorrhage [Unknown]
  - Infection [Unknown]
  - Lower respiratory tract infection [Unknown]
  - Wheezing [Unknown]
